FAERS Safety Report 23912679 (Version 3)
Quarter: 2025Q2

REPORT INFORMATION
  Report Type: Report from Study
  Country: US (occurrence: US)
  Receive Date: 20240529
  Receipt Date: 20250606
  Transmission Date: 20250717
  Serious: No
  Sender: TAKEDA
  Company Number: US-TAKEDA-2024TUS053031

PATIENT
  Sex: Female

DRUGS (2)
  1. LANADELUMAB [Suspect]
     Active Substance: LANADELUMAB
     Indication: Hereditary angioedema
  2. LANADELUMAB [Suspect]
     Active Substance: LANADELUMAB
     Dosage: 2 MILLILITER, Q2WEEKS

REACTIONS (5)
  - Product use issue [Unknown]
  - Headache [Recovered/Resolved]
  - Hereditary angioedema [Recovered/Resolved]
  - Seasonal allergy [Unknown]
  - Dizziness [Recovered/Resolved]
